FAERS Safety Report 17657335 (Version 1)
Quarter: 2020Q2

REPORT INFORMATION
  Report Type: Report from Study
  Country: CA (occurrence: CA)
  Receive Date: 20200410
  Receipt Date: 20200410
  Transmission Date: 20200713
  Serious: Yes (Other)
  Sender: FDA-Public Use
  Company Number: PHHY2018CA095143

PATIENT
  Age: 1 Year
  Sex: Female

DRUGS (7)
  1. ILARIS [Suspect]
     Active Substance: CANAKINUMAB
     Dosage: 40 MG, Q4W
     Route: 058
     Dates: start: 20191010
  2. KINERET [Concomitant]
     Active Substance: ANAKINRA
     Indication: PRODUCT USED FOR UNKNOWN INDICATION
     Route: 065
  3. ILARIS [Suspect]
     Active Substance: CANAKINUMAB
     Indication: MUCKLE-WELLS SYNDROME
     Dosage: 36 MG, Q 8 WEEKS
     Route: 058
     Dates: start: 20180829
  4. ILARIS [Suspect]
     Active Substance: CANAKINUMAB
     Dosage: 36 MG, Q 8 WEEKS
     Route: 058
     Dates: start: 20181010
  5. ILARIS [Suspect]
     Active Substance: CANAKINUMAB
     Dosage: 80 MG, Q4W
     Route: 058
  6. ILARIS [Suspect]
     Active Substance: CANAKINUMAB
     Dosage: 80 MG, Q4W
     Route: 058
     Dates: start: 20190326
  7. ILARIS [Suspect]
     Active Substance: CANAKINUMAB
     Dosage: 72 MG, Q 8 WEEKS
     Route: 058

REACTIONS (17)
  - Pyrexia [Unknown]
  - Neutrophil count decreased [Unknown]
  - Neutropenia [Unknown]
  - Urticaria [Unknown]
  - Pyrexia [Recovered/Resolved]
  - Condition aggravated [Unknown]
  - Therapeutic product effect incomplete [Unknown]
  - Drug ineffective [Unknown]
  - C-reactive protein increased [Not Recovered/Not Resolved]
  - Rash [Unknown]
  - Eye swelling [Unknown]
  - Cryopyrin associated periodic syndrome [Unknown]
  - Tumour necrosis factor receptor-associated periodic syndrome [Unknown]
  - Transaminases increased [Unknown]
  - Anaemia [Recovering/Resolving]
  - Skin disorder [Unknown]
  - Muckle-Wells syndrome [Unknown]

NARRATIVE: CASE EVENT DATE: 2018
